FAERS Safety Report 22270834 (Version 1)
Quarter: 2023Q2

REPORT INFORMATION
  Report Type: Report from Study
  Country: GB (occurrence: GB)
  Receive Date: 20230501
  Receipt Date: 20230501
  Transmission Date: 20230721
  Serious: Yes (Death, Other)
  Sender: FDA-Public Use
  Company Number: GB-PFIZER INC-PV202300076559

PATIENT

DRUGS (10)
  1. DOXORUBICIN HYDROCHLORIDE [Suspect]
     Active Substance: DOXORUBICIN HYDROCHLORIDE
     Indication: Burkitt^s lymphoma
     Dosage: 40 MG, CYCLIC (DAY 1)
     Route: 042
  2. VINCRISTINE SULFATE [Suspect]
     Active Substance: VINCRISTINE SULFATE
     Indication: Burkitt^s lymphoma
     Dosage: 1.5 MG/M2, CYCLIC (DAY 1, AND DAY 8, MAX 2 MG)
     Route: 042
  3. METHOTREXATE SODIUM [Suspect]
     Active Substance: METHOTREXATE SODIUM
     Indication: Burkitt^s lymphoma
     Dosage: UNK UNK, CYCLIC (DAY 10)
     Route: 042
  4. METHOTREXATE SODIUM [Suspect]
     Active Substance: METHOTREXATE SODIUM
     Dosage: 12 MG, CYCLIC (DAY 15)
     Route: 037
  5. CYTARABINE [Suspect]
     Active Substance: CYTARABINE
     Indication: Burkitt^s lymphoma
     Dosage: 70 MG, CYCLIC (DAY 1, DAY 3)
     Route: 037
  6. LEUCOVORIN CALCIUM [Suspect]
     Active Substance: LEUCOVORIN CALCIUM
     Indication: Burkitt^s lymphoma
     Dosage: 15 MG/M2, CYCLIC (DAY 11 36 H AFTER MTX AND CONTINUED UNTIL MTX LEVEL WAS LESS THAN 5 X 10^-8 M).)
     Route: 042
  7. LEUCOVORIN CALCIUM [Suspect]
     Active Substance: LEUCOVORIN CALCIUM
     Dosage: 15 MG, CYCLIC (DAY 16 24 H AFTER IT MTX)
     Route: 048
  8. CYCLOPHOSPHAMIDE [Suspect]
     Active Substance: CYCLOPHOSPHAMIDE
     Indication: Burkitt^s lymphoma
     Dosage: 800 MG, CYCLIC (DAY 1)
     Route: 042
  9. CYCLOPHOSPHAMIDE [Suspect]
     Active Substance: CYCLOPHOSPHAMIDE
     Dosage: 200 MG/M2, CYCLIC (DAY 2 TO 5 DAILY)
     Route: 042
  10. GRANULOCYTE COLONY-STIMULATING FACTOR NOS [Suspect]
     Active Substance: GRANULOCYTE COLONY-STIMULATING FACTOR NOS
     Indication: Burkitt^s lymphoma
     Dosage: 5 UG/KG, AS NEEDED (DAILY FROM DAY 13 UNTIL GRANULOCYTE COUNT } 1 X 10^9/L THEN DISCONTINUE)
     Route: 058

REACTIONS (1)
  - Death [Fatal]
